FAERS Safety Report 7794233-4 (Version None)
Quarter: 2011Q3

REPORT INFORMATION
  Report Type: 
  Country: None (occurrence: None)
  Receive Date: 20110929
  Receipt Date: 20110921
  Transmission Date: 20111222
  Serious: Yes (Hospitalization, Other)
  Sender: FDA-Public Use
  Company Number: 2011MA014383

PATIENT
  Sex: Male

DRUGS (2)
  1. FOLIC ACID [Concomitant]
  2. CITALOPRAM HYDROBROMIDE [Suspect]
     Indication: MATERNAL EXPOSURE DURING PREGNANCY
     Dosage: 40 MG;QD;TRPL
     Route: 064
     Dates: start: 20100828, end: 20110610

REACTIONS (4)
  - CONVULSION NEONATAL [None]
  - MYOCLONUS [None]
  - MATERNAL DRUGS AFFECTING FOETUS [None]
  - C-REACTIVE PROTEIN INCREASED [None]
